FAERS Safety Report 9402917 (Version 2)
Quarter: 2013Q3

REPORT INFORMATION
  Report Type: Report from Study
  Country: US (occurrence: US)
  Receive Date: 20130716
  Receipt Date: 20130826
  Transmission Date: 20140515
  Serious: Yes (Other)
  Sender: FDA-Public Use
  Company Number: US-009507513-1307USA004813

PATIENT
  Age: 27 Year
  Sex: Male

DRUGS (5)
  1. REBETOL [Suspect]
     Indication: CHRONIC HEPATITIS C
     Dosage: UNK
     Dates: start: 20130501
  2. VICTRELIS [Suspect]
     Indication: CHRONIC HEPATITIS C
     Dosage: UNK
     Dates: start: 20130501
  3. PEGASYS [Suspect]
     Indication: CHRONIC HEPATITIS C
     Dosage: 180 MICROGRAM, QW, PROCLICK
     Dates: start: 20130501
  4. TELAPREVIR [Suspect]
     Indication: CHRONIC HEPATITIS C
     Dosage: UNK
     Dates: start: 20130501
  5. PROZAC [Concomitant]
     Dosage: UNK
     Dates: end: 2013

REACTIONS (6)
  - Suicidal ideation [Unknown]
  - Drug hypersensitivity [Unknown]
  - Pharyngeal oedema [Recovered/Resolved]
  - Rash [Unknown]
  - Pyrexia [Unknown]
  - Influenza [Unknown]
